FAERS Safety Report 18266008 (Version 4)
Quarter: 2020Q4

REPORT INFORMATION
  Report Type: Spontaneous
  Country: JP (occurrence: JP)
  Receive Date: 20200915
  Receipt Date: 20201118
  Transmission Date: 20210113
  Serious: Yes (Hospitalization, Other)
  Sender: FDA-Public Use
  Company Number: JP-GLAXOSMITHKLINE-JP2020181376

PATIENT
  Age: 89 Year
  Sex: Female
  Weight: 43 kg

DRUGS (11)
  1. CALONAL TABLET [Concomitant]
     Dosage: 40 MG, TID
     Dates: end: 20200909
  2. ALESION TABLETS [Concomitant]
     Dosage: 10 MG, QD
  3. RELVAR ELLIPTA [Suspect]
     Active Substance: FLUTICASONE FUROATE\VILANTEROL TRIFENATATE
     Indication: ASTHMA
     Dosage: UNK, QD
     Route: 055
     Dates: start: 20200909, end: 20200915
  4. EDIROL [Concomitant]
     Active Substance: ELDECALCITOL
     Dosage: 0.5 UG, QD
  5. SERETIDE [Suspect]
     Active Substance: FLUTICASONE PROPIONATE\SALMETEROL XINAFOATE
     Indication: ASTHMA
     Dosage: 100 ?G, BID
     Route: 055
     Dates: end: 20200908
  6. NEODOPASTON [Concomitant]
     Active Substance: CARBIDOPA\LEVODOPA
     Dosage: 50 MG, TID
  7. DOPS (JAPAN) [Concomitant]
     Dosage: 200 MG, TID
  8. NEXIUM [Concomitant]
     Active Substance: ESOMEPRAZOLE MAGNESIUM
     Dosage: 20 MG, QD
  9. BLOPRESS TABLETS [Concomitant]
     Active Substance: CANDESARTAN CILEXETIL
     Dosage: 2 MG, QD
  10. ZOLPIDEM TARTRATE. [Concomitant]
     Active Substance: ZOLPIDEM TARTRATE
     Dosage: 5 MG, QD
  11. FP (JAPAN) [Concomitant]
     Dosage: 5 MG, BID

REACTIONS (8)
  - Clavicle fracture [Recovered/Resolved]
  - Mental impairment [Unknown]
  - Dyspnoea [Unknown]
  - Delirium [Unknown]
  - Fall [Recovered/Resolved]
  - Head injury [Recovered/Resolved]
  - Contusion [Recovered/Resolved]
  - Subarachnoid haemorrhage [Unknown]

NARRATIVE: CASE EVENT DATE: 20200902
